FAERS Safety Report 9915517 (Version 1)
Quarter: 2014Q1

REPORT INFORMATION
  Report Type: Report from Study
  Country: US (occurrence: US)
  Receive Date: 20140221
  Receipt Date: 20140221
  Transmission Date: 20141002
  Serious: Yes (Other)
  Sender: FDA-Public Use
  Company Number: US-ROCHE-1350628

PATIENT
  Sex: Male

DRUGS (1)
  1. AVASTIN [Suspect]
     Indication: AGE-RELATED MACULAR DEGENERATION
     Route: 065

REACTIONS (9)
  - Presumed ocular histoplasmosis syndrome [Unknown]
  - Intraocular pressure increased [Unknown]
  - Macular degeneration [Unknown]
  - Vitreous detachment [Unknown]
  - Vitreous floaters [Unknown]
  - Off label use [Unknown]
  - Metamorphopsia [Unknown]
  - Retinal detachment [Unknown]
  - Cataract [Unknown]
